FAERS Safety Report 5344175-9 (Version None)
Quarter: 2007Q2

REPORT INFORMATION
  Report Type: 
  Country: None (occurrence: None)
  Receive Date: 20070604
  Receipt Date: 20070522
  Transmission Date: 20071010
  Serious: Yes (Death, Life-Threatening)
  Sender: FDA-Public Use
  Company Number: DE-ROCHE-484632

PATIENT
  Age: 60 Year
  Sex: Female

DRUGS (2)
  1. MYCOPHENOLATE MOFETIL [Suspect]
     Route: 042
     Dates: start: 20070201, end: 20070206
  2. FK506 [Suspect]
     Route: 048
     Dates: start: 20070201, end: 20070206

REACTIONS (4)
  - CARDIOVASCULAR INSUFFICIENCY [None]
  - COMPLICATIONS OF TRANSPLANTED LIVER [None]
  - INTESTINAL FUNCTIONAL DISORDER [None]
  - SEPSIS [None]
